FAERS Safety Report 9557333 (Version 1)
Quarter: 2013Q3

REPORT INFORMATION
  Report Type: Spontaneous
  Country: US (occurrence: None)
  Receive Date: 20130726
  Receipt Date: 20130726
  Transmission Date: 20140515
  Serious: Yes (Hospitalization)
  Sender: FDA-Public Use
  Company Number: UTC-021077

PATIENT
  Age: 38 Year
  Sex: Female
  Weight: 61.8 kg

DRUGS (3)
  1. REMODULIN [Suspect]
     Indication: COR PULMONALE CHRONIC
     Dosage: 0.106 UG/KG, 1 IN 1 MIN)
     Route: 042
     Dates: start: 20090209
  2. COUMADIN (WARFARIN SODIUM) [Concomitant]
  3. REVATIO (SILDENAFIL CITRATE) (UNKNOWN) (SILDENAFIL) [Concomitant]

REACTIONS (1)
  - Device related infection [None]
